FAERS Safety Report 19213471 (Version 2)
Quarter: 2021Q2

REPORT INFORMATION
  Report Type: Spontaneous
  Country: EG (occurrence: EG)
  Receive Date: 20210504
  Receipt Date: 20210514
  Transmission Date: 20210717
  Serious: Yes (Disabling, Other)
  Sender: FDA-Public Use
  Company Number: NVSC2021EG099182

PATIENT
  Age: 8 Month
  Sex: Male
  Weight: 11.5 kg

DRUGS (7)
  1. FOLIC ACID. [Concomitant]
     Active Substance: FOLIC ACID
     Indication: FOETAL EXPOSURE DURING PREGNANCY
     Dosage: MATERNAL DOSE: 5 MG, QD, SINCE 2 MONTHS AGO
     Route: 064
  2. OMEGA 3 [Concomitant]
     Active Substance: OMEGA-3 FATTY ACIDS
     Indication: FOETAL EXPOSURE DURING PREGNANCY
     Dosage: MATERNAL DOSE; QD, SINCE SIX MONTHS)
     Route: 064
  3. VIDROP [Concomitant]
     Indication: MULTI-VITAMIN DEFICIENCY
     Dosage: 7 DROPS, QD
     Route: 048
     Dates: start: 20191220, end: 202009
  4. GILENYA [Suspect]
     Active Substance: FINGOLIMOD HYDROCHLORIDE
     Dosage: MATERNAL DOSE: 0.5 MG, QD, ORAL FROM DEC 2019 TO 05 JUN 2020
     Route: 064
  5. VIDROP [Concomitant]
     Dosage: 7 DROPS, QD
     Route: 048
     Dates: start: 202011
  6. GILENYA [Suspect]
     Active Substance: FINGOLIMOD HYDROCHLORIDE
     Indication: FOETAL EXPOSURE DURING PREGNANCY
     Dosage: MATERNAL DOSE; 0.5 MG, QD, ORAL FROM NOV 2017 TO NOV 2018
     Route: 064
  7. BIO?CAL [Concomitant]
     Indication: FOETAL EXPOSURE DURING PREGNANCY
     Dosage: MATERNAL DOSE: QD
     Route: 064

REACTIONS (2)
  - Foetal exposure during pregnancy [Unknown]
  - Blount^s disease [Not Recovered/Not Resolved]

NARRATIVE: CASE EVENT DATE: 202009
